FAERS Safety Report 17362572 (Version 1)
Quarter: 2020Q1

REPORT INFORMATION
  Report Type: Spontaneous
  Country: GB (occurrence: GB)
  Receive Date: 20200203
  Receipt Date: 20200203
  Transmission Date: 20200409
  Serious: Yes (Death, Other)
  Sender: FDA-Public Use
  Company Number: GB-PFIZER INC-2020045117

PATIENT
  Age: 44 Year

DRUGS (6)
  1. FLUDARABINE [Suspect]
     Active Substance: FLUDARABINE PHOSPHATE
  2. MELPHALAN [MELPHALAN HYDROCHLORIDE] [Suspect]
     Active Substance: MELPHALAN HYDROCHLORIDE
  3. CASPOFUNGIN [Concomitant]
     Active Substance: CASPOFUNGIN
     Indication: ANTIFUNGAL PROPHYLAXIS
  4. CYTARABINE. [Suspect]
     Active Substance: CYTARABINE
  5. INOTUZUMAB OZOGAMICIN [Suspect]
     Active Substance: INOTUZUMAB OZOGAMICIN
     Dosage: 1.8 MG/M2, UNK
  6. INOTUZUMAB OZOGAMICIN [Suspect]
     Active Substance: INOTUZUMAB OZOGAMICIN
     Dosage: 1.5 MG/M2, UNK

REACTIONS (2)
  - Graft versus host disease [Unknown]
  - Cytomegalovirus infection [Fatal]
